FAERS Safety Report 10735830 (Version 2)
Quarter: 2015Q1

REPORT INFORMATION
  Report Type: Report from Study
  Country: US (occurrence: US)
  Receive Date: 20150126
  Receipt Date: 20150220
  Transmission Date: 20150721
  Serious: Yes (Hospitalization)
  Sender: FDA-Public Use
  Company Number: US-BIOGENIDEC-2015BI006105

PATIENT
  Age: 59 Year
  Sex: Female

DRUGS (1)
  1. TECFIDERA [Suspect]
     Active Substance: DIMETHYL FUMARATE
     Indication: MULTIPLE SCLEROSIS
     Route: 048
     Dates: start: 201404

REACTIONS (8)
  - Dehydration [Unknown]
  - Weight decreased [Unknown]
  - Diplopia [Unknown]
  - Gait disturbance [Unknown]
  - Disturbance in attention [Unknown]
  - Dysarthria [Recovered/Resolved]
  - Abasia [Unknown]
  - Aphasia [Unknown]

NARRATIVE: CASE EVENT DATE: 201409
